FAERS Safety Report 7183082-6 (Version None)
Quarter: 2010Q4

REPORT INFORMATION
  Report Type: 
  Country: None (occurrence: None)
  Receive Date: 20101222
  Receipt Date: 20100806
  Transmission Date: 20110411
  Serious: No
  Sender: FDA-Public Use
  Company Number: A0876181A

PATIENT
  Age: 68 Year
  Sex: Male

DRUGS (1)
  1. RHYTHMOL [Suspect]
     Route: 065

REACTIONS (3)
  - CARDIAC FLUTTER [None]
  - DRUG INEFFECTIVE [None]
  - HEART RATE INCREASED [None]
